FAERS Safety Report 24201696 (Version 1)
Quarter: 2024Q3

REPORT INFORMATION
  Report Type: Spontaneous
  Country: US (occurrence: US)
  Receive Date: 20240812
  Receipt Date: 20240812
  Transmission Date: 20241017
  Serious: Yes (Hospitalization, Other)
  Sender: PRAXGEN PHARMACEUTICALS
  Company Number: US-PRAXGEN-2024PPLIT00047

PATIENT
  Age: 71 Year
  Sex: Female

DRUGS (1)
  1. METHYLPREDNISOLONE [Suspect]
     Active Substance: METHYLPREDNISOLONE
     Indication: Vasculitis
     Route: 065

REACTIONS (1)
  - Diabetic ketoacidosis [Unknown]
